FAERS Safety Report 24183241 (Version 1)
Quarter: 2024Q3

REPORT INFORMATION
  Report Type: Spontaneous
  Country: US (occurrence: None)
  Receive Date: 20240806
  Receipt Date: 20240806
  Transmission Date: 20241017
  Serious: Yes (Other)
  Sender: Public
  Company Number: None

PATIENT
  Age: 64 Year
  Sex: Male
  Weight: 82.8 kg

DRUGS (9)
  1. NEBIVOLOL [Suspect]
     Active Substance: NEBIVOLOL
     Indication: Hypertension
     Dosage: 1 TABLET AT BEDTIME ORAL
     Route: 048
     Dates: start: 20240504, end: 20240717
  2. TAMSULOSIN HYDROCHLORIDE [Concomitant]
     Active Substance: TAMSULOSIN HYDROCHLORIDE
  3. DUTASTERIDE [Concomitant]
     Active Substance: DUTASTERIDE
  4. HYDROCHLOROTHIAZIDE\LISINOPRIL [Concomitant]
     Active Substance: HYDROCHLOROTHIAZIDE\LISINOPRIL
  5. PRAVASTATIN [Concomitant]
     Active Substance: PRAVASTATIN
  6. DOXEPIN [Concomitant]
     Active Substance: DOXEPIN
  7. VITAMIN D [Concomitant]
     Active Substance: VITAMIN D NOS
  8. VITAMIN B12 [Concomitant]
     Active Substance: CYANOCOBALAMIN
  9. OMEGA 3 [Concomitant]
     Active Substance: CAPSAICIN

REACTIONS (7)
  - Weight increased [None]
  - Sleep disorder [None]
  - Glucose tolerance impaired [None]
  - Fluid retention [None]
  - Wheezing [None]
  - Drug ineffective [None]
  - Glycosylated haemoglobin increased [None]

NARRATIVE: CASE EVENT DATE: 20240708
